FAERS Safety Report 8271135-0 (Version None)
Quarter: 2012Q2

REPORT INFORMATION
  Report Type: 
  Country: None (occurrence: None)
  Receive Date: 20120410
  Receipt Date: 20120406
  Transmission Date: 20120825
  Serious: Yes (Hospitalization, Other)
  Sender: FDA-Public Use
  Company Number: JP-PFIZER INC-2012072695

PATIENT
  Age: 40 Year
  Sex: Male

DRUGS (2)
  1. RABEPRAZOLE SODIUM [Concomitant]
     Dosage: UNK
  2. MEDROL [Suspect]
     Dosage: 4 MG, 1X/DAY
     Route: 048
     Dates: start: 20111021, end: 20120301

REACTIONS (1)
  - ILEUS [None]
